FAERS Safety Report 23752439 (Version 4)
Quarter: 2024Q4

REPORT INFORMATION
  Report Type: Spontaneous
  Country: US (occurrence: US)
  Receive Date: 20240417
  Receipt Date: 20241114
  Transmission Date: 20250114
  Serious: Yes (Hospitalization, Other)
  Sender: VERTEX
  Company Number: US-VERTEX PHARMACEUTICALS-2024-006470

PATIENT
  Age: 43 Year

DRUGS (3)
  1. TRIKAFTA [Suspect]
     Active Substance: ELEXACAFTOR\IVACAFTOR\TEZACAFTOR
     Indication: Cystic fibrosis
     Dosage: UNKNOWN DOSAGE REGIMEN
     Route: 048
  2. TRIKAFTA [Suspect]
     Active Substance: ELEXACAFTOR\IVACAFTOR\TEZACAFTOR
     Dosage: SWITCHED DOSE
     Route: 048
  3. CREON [Concomitant]
     Active Substance: PANCRELIPASE AMYLASE\PANCRELIPASE LIPASE\PANCRELIPASE PROTEASE

REACTIONS (10)
  - Infective pulmonary exacerbation of cystic fibrosis [Unknown]
  - Nasal polyps [Recovered/Resolved]
  - Myasthenia gravis [Unknown]
  - Brain fog [Recovering/Resolving]
  - Glucose tolerance impaired [Unknown]
  - Viral infection [Unknown]
  - Learning disorder [Unknown]
  - Attention deficit hyperactivity disorder [Not Recovered/Not Resolved]
  - Depression [Not Recovered/Not Resolved]
  - Nasopharyngitis [Unknown]
